FAERS Safety Report 23441598 (Version 1)
Quarter: 2024Q1

REPORT INFORMATION
  Report Type: Spontaneous
  Country: MX (occurrence: MX)
  Receive Date: 20240125
  Receipt Date: 20240125
  Transmission Date: 20240409
  Serious: Yes (Death, Other)
  Sender: FDA-Public Use
  Company Number: MX-AJANTA-2024AJA00009

PATIENT
  Age: 71 Year
  Sex: Female

DRUGS (2)
  1. VALGANCICLOVIR [Suspect]
     Active Substance: VALGANCICLOVIR
     Indication: Cytomegalovirus chorioretinitis
     Route: 048
  2. GANCICLOVIR [Suspect]
     Active Substance: GANCICLOVIR
     Indication: Cytomegalovirus chorioretinitis
     Dosage: 2 INTRAVITREAL INJECTIONS 4 MG/0.1 ML
     Route: 035

REACTIONS (3)
  - Pneumonia cytomegaloviral [Fatal]
  - Treatment failure [Fatal]
  - Neutropenia [Unknown]
